FAERS Safety Report 5613108-X (Version None)
Quarter: 2008Q1

REPORT INFORMATION
  Report Type: 
  Country: None (occurrence: None)
  Receive Date: 20080123
  Receipt Date: 20080110
  Transmission Date: 20080703
  Serious: Yes (Hospitalization)
  Sender: FDA-Public Use
  Company Number: 1-15686452/MED-08013

PATIENT
  Sex: Male

DRUGS (1)
  1. ZONISAMIDE                           (STRENGTH UNKNOWN MFR UNKNOWN) [Suspect]
     Indication: BINGE EATING

REACTIONS (2)
  - INFECTED VARICOSE VEIN [None]
  - VARICOCELE [None]
